FAERS Safety Report 9972439 (Version 1)
Quarter: 2014Q1

REPORT INFORMATION
  Report Type: Spontaneous
  Country: IN (occurrence: None)
  Receive Date: 20140304
  Receipt Date: 20140304
  Transmission Date: 20141002
  Serious: Yes (Death, Other)
  Sender: FDA-Public Use
  Company Number: 152693

PATIENT
  Age: 49 Year
  Sex: Male

DRUGS (2)
  1. IRINOTECAN HCI [Suspect]
     Indication: CHEMOTHERAPY
  2. CISPLATIN INJ. 50MG/50ML -BEDFORD LABS, INC [Suspect]
     Indication: CHEMOTHERAPY

REACTIONS (2)
  - Tuberculous pleurisy [None]
  - Metastases to central nervous system [None]
